FAERS Safety Report 8317919 (Version 3)
Quarter: 2012Q4

REPORT INFORMATION
  Report Type: Report from Study
  Country: AU (occurrence: AU)
  Receive Date: 20120102
  Receipt Date: 20121128
  Transmission Date: 20130627
  Serious: Yes (Hospitalization)
  Sender: FDA-Public Use
  Company Number: AU-ROCHE-1026026

PATIENT
  Age: 62 Year
  Sex: Male

DRUGS (8)
  1. BEVACIZUMAB [Suspect]
     Indication: GLIOBLASTOMA MULTIFORME
     Route: 065
     Dates: start: 20111205
  2. BEVACIZUMAB [Suspect]
     Route: 065
     Dates: start: 20111218
  3. CARBAMAZEPINE [Concomitant]
     Route: 048
     Dates: start: 20110804
  4. AMLODIPINE [Concomitant]
     Route: 065
     Dates: start: 20000708
  5. OLMETEC PLUS [Concomitant]
     Route: 065
     Dates: start: 200708, end: 20111219
  6. CITALOPRAM HYDROBROMIDE [Concomitant]
     Route: 048
     Dates: start: 20011207
  7. OMEPRAZOLE SR [Concomitant]
     Route: 048
     Dates: start: 201104
  8. METOCLOPRAMIDE [Concomitant]
     Route: 048
     Dates: start: 201101

REACTIONS (1)
  - Blood creatinine increased [Recovered/Resolved with Sequelae]
